FAERS Safety Report 9563682 (Version 1)
Quarter: 2013Q1

REPORT INFORMATION
  Report Type: Spontaneous
  Country: US (occurrence: None)
  Receive Date: 20121227
  Receipt Date: 20121227
  Transmission Date: 20140127
  Serious: Yes (Other)
  Sender: FDA-Public Use
  Company Number: PHEH2012US001795

PATIENT
  Sex: 0

DRUGS (5)
  1. EXJADE [Suspect]
     Indication: APLASTIC ANAEMIA
     Route: 048
     Dates: start: 20120120, end: 20120122
  2. EXJADE [Suspect]
     Indication: IRON OVERLOAD
     Route: 048
     Dates: start: 20120120, end: 20120122
  3. LUMIGAN (BIMATOPROST) [Concomitant]
  4. ALPHAGAN (BRIMONIDINE TARTRATE) [Concomitant]
  5. TRANSFUSIONS (NO INGREDIENTS/SUBSTANCES) [Concomitant]

REACTIONS (10)
  - Hypersensitivity [None]
  - Oropharyngeal pain [None]
  - Oedema peripheral [None]
  - Rash generalised [None]
  - Swelling face [None]
  - Pruritus [None]
  - Urticaria [None]
  - Oedema mouth [None]
  - Angioedema [None]
  - Chest discomfort [None]
